FAERS Safety Report 8158784-5 (Version None)
Quarter: 2012Q1

REPORT INFORMATION
  Report Type: 
  Country: None (occurrence: None)
  Receive Date: 20120223
  Receipt Date: 20120217
  Transmission Date: 20120608
  Serious: No
  Sender: FDA-Public Use
  Company Number: GB-ASTELLAS-2011EU009328

PATIENT
  Sex: Female
  Weight: 75 kg

DRUGS (3)
  1. VESICARE [Suspect]
     Indication: HYPERTONIC BLADDER
     Dosage: 10 MG, UID/QD
     Route: 048
     Dates: start: 20110930
  2. TRAMADOL HCL [Concomitant]
     Indication: BACK PAIN
     Dosage: UNK
     Route: 048
     Dates: start: 20101207
  3. ACETAMINOPHEN [Concomitant]
     Indication: BACK PAIN
     Dosage: 1 G, UID/QD
     Route: 048
     Dates: start: 20110311

REACTIONS (3)
  - BREAST PAIN [None]
  - DRY MOUTH [None]
  - DIZZINESS [None]
